FAERS Safety Report 18960859 (Version 1)
Quarter: 2021Q1

REPORT INFORMATION
  Report Type: Spontaneous
  Country: IE (occurrence: IE)
  Receive Date: 20210303
  Receipt Date: 20210303
  Transmission Date: 20210420
  Serious: Yes (Hospitalization, Other)
  Sender: FDA-Public Use
  Company Number: IE-AMGEN-IRLSP2021031069

PATIENT
  Age: 74 Year
  Sex: Male

DRUGS (8)
  1. RAPORSIN [Concomitant]
     Active Substance: DOXAZOSIN MESYLATE
     Dosage: 8MG ONCE DAILY
     Dates: start: 20201214
  2. ARANESP [Suspect]
     Active Substance: DARBEPOETIN ALFA
     Dosage: SECOND DOSE
     Route: 058
     Dates: start: 20210107
  3. ATORVASTATIN [ATORVASTATIN CALCIUM] [Concomitant]
     Active Substance: ATORVASTATIN CALCIUM
     Dosage: 40MG ONCE DAILY
     Dates: start: 20201214
  4. ARANESP [Suspect]
     Active Substance: DARBEPOETIN ALFA
     Indication: ANAEMIA
     Dosage: FIRST DOSE
     Route: 058
     Dates: start: 20201231
  5. NEXAZOLE [Concomitant]
     Dosage: 40MG ONCE DAILY
     Dates: start: 20201214
  6. AMOCLAV [AMOXICILLIN TRIHYDRATE;CLAVULANATE POTASSIUM] [Concomitant]
     Active Substance: AMOXICILLIN\CLAVULANATE POTASSIUM
     Indication: ANTIBIOTIC THERAPY
     Dosage: 500/125MG TDS
     Dates: start: 20201231, end: 20210107
  7. LOSARTAN. [Concomitant]
     Active Substance: LOSARTAN
     Dosage: 100MG ONCE DAILY
     Dates: start: 20201214
  8. FOLIC ACID. [Concomitant]
     Active Substance: FOLIC ACID
     Dosage: 5MG ONCE DAILY
     Dates: start: 20201231

REACTIONS (1)
  - Transient ischaemic attack [Unknown]

NARRATIVE: CASE EVENT DATE: 20210109
